FAERS Safety Report 10983832 (Version 1)
Quarter: 2015Q2

REPORT INFORMATION
  Report Type: Spontaneous
  Country: IE (occurrence: None)
  Receive Date: 20150401
  Receipt Date: 20150401
  Transmission Date: 20150821
  Serious: Yes (Hospitalization)
  Sender: FDA-Public Use
  Company Number: 2015FE00961

PATIENT
  Age: 80 Year
  Sex: Female

DRUGS (1)
  1. PICOLAX [Suspect]
     Active Substance: CITRIC ACID MONOHYDRATE\MAGNESIUM OXIDE\SODIUM PICOSULFATE
     Indication: COLONOSCOPY
     Route: 048
     Dates: start: 20150227

REACTIONS (4)
  - Hyponatraemia [None]
  - Syncope [None]
  - Coma scale abnormal [None]
  - Seizure [None]

NARRATIVE: CASE EVENT DATE: 20150228
